FAERS Safety Report 7875946-2 (Version None)
Quarter: 2011Q4

REPORT INFORMATION
  Report Type: 
  Country: None (occurrence: None)
  Receive Date: 20111031
  Receipt Date: 20111027
  Transmission Date: 20120403
  Serious: Yes (Other)
  Sender: FDA-Public Use
  Company Number: BR-ROCHE-793835

PATIENT
  Sex: Female
  Weight: 5.7 kg

DRUGS (10)
  1. PREDNISOLONE [Concomitant]
  2. LEVOTHYROXINE SODIUM [Concomitant]
  3. IBUPROFEN [Concomitant]
     Dosage: FREQ: EVENTUALLY.
     Dates: start: 20110101, end: 20110729
  4. ACTEMRA [Suspect]
     Indication: RHEUMATOID ARTHRITIS
     Dosage: PERMANENTLY DISCONTINUED; FREQUENCY :MONTHLY
     Route: 042
     Dates: start: 20110506, end: 20110729
  5. CLONAZEPAM [Concomitant]
  6. OMEPRAZOLE [Concomitant]
  7. ACID FOLIC [Concomitant]
  8. IBUPROFEN [Suspect]
     Indication: PRODUCT USED FOR UNKNOWN INDICATION
     Dosage: TO BE TAKEN EVENTUALLY.
     Route: 065
     Dates: start: 20110101, end: 20110729
  9. AMYTRIL [Concomitant]
  10. METHOTREXATE [Suspect]
     Indication: RHEUMATOID ARTHRITIS
     Route: 048
     Dates: start: 20110506, end: 20110729

REACTIONS (1)
  - GASTROINTESTINAL HAEMORRHAGE [None]
